FAERS Safety Report 19079314 (Version 1)
Quarter: 2021Q1

REPORT INFORMATION
  Report Type: Spontaneous
  Country: US (occurrence: US)
  Receive Date: 20210331
  Receipt Date: 20210331
  Transmission Date: 20210420
  Serious: No
  Sender: FDA-Public Use
  Company Number: US-BAYER-2021-114149

PATIENT
  Sex: Female

DRUGS (2)
  1. MILK OF MAGNESIA ORIGINAL [Concomitant]
     Active Substance: MAGNESIUM HYDROXIDE
  2. MIRALAX [Suspect]
     Active Substance: POLYETHYLENE GLYCOL 3350
     Route: 065
     Dates: end: 20210328

REACTIONS (1)
  - Incorrect product administration duration [Unknown]
